FAERS Safety Report 6050150-1 (Version None)
Quarter: 2009Q1

REPORT INFORMATION
  Report Type: 
  Country: None (occurrence: None)
  Receive Date: 20090122
  Receipt Date: 20090122
  Transmission Date: 20090719
  Serious: Yes (Hospitalization)
  Sender: FDA-Public Use
  Company Number: None

PATIENT
  Age: 13 Year
  Sex: Male
  Weight: 45.3597 kg

DRUGS (1)
  1. PEPCID AC [Suspect]

REACTIONS (2)
  - DRUG HYPERSENSITIVITY [None]
  - DYSPEPSIA [None]
